FAERS Safety Report 24750603 (Version 1)
Quarter: 2024Q4

REPORT INFORMATION
  Report Type: Report from Study
  Country: IT (occurrence: IT)
  Receive Date: 20241218
  Receipt Date: 20241218
  Transmission Date: 20250115
  Serious: Yes (Hospitalization)
  Sender: ABBVIE
  Company Number: IT-ABBVIE-6048040

PATIENT
  Age: 63 Year
  Sex: Male

DRUGS (2)
  1. CARBIDOPA\LEVODOPA [Suspect]
     Active Substance: CARBIDOPA\LEVODOPA
     Indication: Parkinson^s disease
     Dosage: DAILY DOSE: 1.470 MG MD: 9ML+3,5ML CR: 3,8ML/H (15H) ED: 2,8ML
     Route: 050
     Dates: start: 202412
  2. CARBIDOPA\LEVODOPA [Suspect]
     Active Substance: CARBIDOPA\LEVODOPA
     Dosage: DAILY DOSE: 1.470 MG MD: 9ML+3,5ML CR: 3,8ML/H (15H) ED: 2,8ML
     Route: 050
     Dates: start: 20200219, end: 202412

REACTIONS (2)
  - Volvulus [Not Recovered/Not Resolved]
  - Incorrect route of product administration [Not Recovered/Not Resolved]

NARRATIVE: CASE EVENT DATE: 20241201
